FAERS Safety Report 4300031-6 (Version None)
Quarter: 2004Q1

REPORT INFORMATION
  Report Type: 
  Country: None (occurrence: None)
  Receive Date: 20040220
  Receipt Date: 20040113
  Transmission Date: 20041129
  Serious: Yes (Other)
  Sender: FDA-Public Use
  Company Number: PHEH2004US00839

PATIENT

DRUGS (1)
  1. LAMISIL [Suspect]
     Route: 065
     Dates: start: 20031107

REACTIONS (2)
  - DEAFNESS [None]
  - TINNITUS [None]
